FAERS Safety Report 6907608-X (Version None)
Quarter: 2010Q3

REPORT INFORMATION
  Report Type: 
  Country: None (occurrence: None)
  Receive Date: 20100805
  Receipt Date: 20100726
  Transmission Date: 20110219
  Serious: No
  Sender: FDA-Public Use
  Company Number: 2009BI036178

PATIENT
  Age: 39 Year
  Sex: Female

DRUGS (1)
  1. TYSABRI [Suspect]
     Indication: MULTIPLE SCLEROSIS
     Route: 042
     Dates: start: 20090415, end: 20090902

REACTIONS (4)
  - CHILLS [None]
  - DRUG SPECIFIC ANTIBODY PRESENT [None]
  - FEELING COLD [None]
  - MUSCLE TIGHTNESS [None]
